FAERS Safety Report 8152852-X (Version None)
Quarter: 2012Q1

REPORT INFORMATION
  Report Type: 
  Country: None (occurrence: None)
  Receive Date: 20120221
  Receipt Date: 20111115
  Transmission Date: 20120608
  Serious: Yes (Other)
  Sender: FDA-Public Use
  Company Number: CA-JNJFOC-20120110116

PATIENT
  Sex: Female
  Weight: 59 kg

DRUGS (3)
  1. REMICADE [Suspect]
     Indication: COLITIS ULCERATIVE
     Route: 042
     Dates: start: 20111029
  2. REMICADE [Suspect]
     Dosage: LOADING DOSE, THE INFUSION WAS STOPPED IN BETWEEN DUE TO ADVERSE EVENTS
     Route: 042
     Dates: start: 20111115
  3. PREDNISONE [Concomitant]
     Route: 048

REACTIONS (5)
  - ANAEMIA [None]
  - NAUSEA [None]
  - DIARRHOEA HAEMORRHAGIC [None]
  - HEADACHE [None]
  - INFUSION RELATED REACTION [None]
